FAERS Safety Report 20723851 (Version 1)
Quarter: 2022Q2

REPORT INFORMATION
  Report Type: Spontaneous
  Country: CN (occurrence: None)
  Receive Date: 20220419
  Receipt Date: 20220419
  Transmission Date: 20220721
  Serious: Yes (Life-Threatening)
  Sender: FDA-Public Use
  Company Number: CN-ROCHE-3075845

PATIENT
  Sex: Female
  Weight: 52.5 kg

DRUGS (4)
  1. PERJETA [Suspect]
     Active Substance: PERTUZUMAB
     Indication: Breast cancer
     Dosage: TCBHP FOR 3 CYCLES
     Route: 041
     Dates: start: 20220322
  2. HERCEPTIN [Suspect]
     Active Substance: TRASTUZUMAB
     Indication: Breast cancer
     Dosage: TCBHP FOR 3 CYCLES
     Route: 041
     Dates: start: 20220322
  3. CARBOPLATIN [Suspect]
     Active Substance: CARBOPLATIN
     Indication: Breast cancer
     Dosage: TCBHP FOR 3 CYCLES
     Route: 041
     Dates: start: 20220323
  4. DOCETAXEL [Suspect]
     Active Substance: DOCETAXEL
     Indication: Breast cancer
     Dosage: TCBHP FOR 3 CYCLES
     Route: 041
     Dates: start: 20220323

REACTIONS (4)
  - Granulocyte count decreased [Recovering/Resolving]
  - White blood cell count decreased [Recovered/Resolved]
  - Platelet count decreased [Recovered/Resolved]
  - Anaemia [Recovering/Resolving]
